FAERS Safety Report 4551337-7 (Version None)
Quarter: 2005Q1

REPORT INFORMATION
  Report Type: 
  Country: None (occurrence: None)
  Receive Date: 20050113
  Receipt Date: 20050105
  Transmission Date: 20050727
  Serious: Yes (Hospitalization)
  Sender: FDA-Public Use
  Company Number: US-MERCK-0501USA00687

PATIENT
  Age: 80 Year
  Sex: Male

DRUGS (2)
  1. PRINIVIL [Suspect]
     Route: 048
  2. COZAAR [Suspect]
     Indication: RENAL FAILURE
     Route: 048

REACTIONS (2)
  - PNEUMONIA ASPIRATION [None]
  - RENAL FAILURE [None]
